FAERS Safety Report 5222411-7 (Version None)
Quarter: 2007Q1

REPORT INFORMATION
  Report Type: 
  Country: None (occurrence: None)
  Receive Date: 20070129
  Receipt Date: 20060811
  Transmission Date: 20070707
  Serious: No
  Sender: FDA-Public Use
  Company Number: US-BRISTOL-MYERS SQUIBB COMPANY-13472766

PATIENT
  Age: 52 Year
  Sex: Female

DRUGS (5)
  1. DESYREL [Suspect]
     Indication: INSOMNIA
     Route: 048
  2. CATAFLAM [Concomitant]
  3. ZOLOFT [Concomitant]
  4. DARVON-N [Concomitant]
  5. SUDAFED 12 HOUR [Concomitant]

REACTIONS (2)
  - DYSARTHRIA [None]
  - FACIAL PALSY [None]
